FAERS Safety Report 6444182-9 (Version None)
Quarter: 2009Q4

REPORT INFORMATION
  Report Type: 
  Country: None (occurrence: None)
  Receive Date: 20091118
  Receipt Date: 20091108
  Transmission Date: 20100525
  Serious: Yes (Life-Threatening, Other)
  Sender: FDA-Public Use
  Company Number: FR-CELGENEUS-056-20484-09110535

PATIENT
  Age: 65 Year
  Sex: Male

DRUGS (1)
  1. INNOHEP [Suspect]
     Indication: DIALYSIS
     Route: 058
     Dates: start: 20090829, end: 20090829

REACTIONS (3)
  - CARDIAC ARREST [None]
  - LOSS OF CONSCIOUSNESS [None]
  - MALAISE [None]
